FAERS Safety Report 16480415 (Version 2)
Quarter: 2019Q4

REPORT INFORMATION
  Report Type: Spontaneous
  Country: JP (occurrence: JP)
  Receive Date: 20190626
  Receipt Date: 20191008
  Transmission Date: 20200122
  Serious: Yes (Hospitalization, Other)
  Sender: FDA-Public Use
  Company Number: JP-BRISTOL-MYERS SQUIBB COMPANY-BMS-2019-062047

PATIENT
  Age: 80 Year
  Sex: Male

DRUGS (6)
  1. ELIQUIS [Suspect]
     Active Substance: APIXABAN
     Indication: PRODUCT USED FOR UNKNOWN INDICATION
     Dosage: 5 MILLIGRAM, BID
     Route: 048
  2. FLIVAS [Concomitant]
     Active Substance: NAFTOPIDIL
     Indication: BENIGN PROSTATIC HYPERPLASIA
     Dosage: 50 MILLIGRAM, QD
     Route: 048
     Dates: end: 20181206
  3. MAGNESIUM OXIDE. [Concomitant]
     Active Substance: MAGNESIUM OXIDE
     Indication: BENIGN PROSTATIC HYPERPLASIA
     Dosage: 990 MILLIGRAM, TID
     Route: 048
     Dates: end: 20181206
  4. ELIQUIS [Suspect]
     Active Substance: APIXABAN
     Indication: CEREBROVASCULAR ACCIDENT PROPHYLAXIS
     Dosage: 5 MILLIGRAM, BID
     Route: 048
     Dates: end: 20181211
  5. LAMICTAL [Concomitant]
     Active Substance: LAMOTRIGINE
     Indication: EPILEPSY
     Dosage: 100 MILLIGRAM, BID
     Route: 048
  6. FEBURIC [Concomitant]
     Active Substance: FEBUXOSTAT
     Indication: URINARY TRACT INFECTION
     Dosage: 10 MILLIGRAM, QD
     Route: 048
     Dates: end: 20181206

REACTIONS (5)
  - Craniocerebral injury [Unknown]
  - Fall [Unknown]
  - Subdural haematoma [Recovered/Resolved]
  - Pyelonephritis acute [Recovered/Resolved]
  - Skull fractured base [Recovering/Resolving]

NARRATIVE: CASE EVENT DATE: 201812
